FAERS Safety Report 24587786 (Version 1)
Quarter: 2024Q4

REPORT INFORMATION
  Report Type: Spontaneous
  Country: US (occurrence: US)
  Receive Date: 20241107
  Receipt Date: 20241107
  Transmission Date: 20250115
  Serious: No
  Sender: CHATTEM
  Company Number: US-OPELLA-2024OHG037297

PATIENT

DRUGS (1)
  1. SELSUN BLUE MEDICATED [Suspect]
     Active Substance: SELENIUM SULFIDE
     Indication: Product used for unknown indication
     Route: 061

REACTIONS (5)
  - Anxiety [Unknown]
  - Psoriasis [Unknown]
  - Skin burning sensation [Unknown]
  - Drug ineffective [Unknown]
  - Product formulation issue [Unknown]
